FAERS Safety Report 11218570 (Version 2)
Quarter: 2015Q3

REPORT INFORMATION
  Report Type: Spontaneous
  Country: US (occurrence: US)
  Receive Date: 20150625
  Receipt Date: 20150706
  Transmission Date: 20151125
  Serious: Yes (Other)
  Sender: FDA-Public Use
  Company Number: US-SUN PHARMACEUTICAL INDUSTRIES LTD-2015US-99135

PATIENT
  Age: 58 Year
  Sex: Female

DRUGS (2)
  1. CLINDAMYCIN [Suspect]
     Active Substance: CLINDAMYCIN\CLINDAMYCIN PHOSPHATE
     Indication: THROAT TIGHTNESS
     Dosage: 1 DF, QID (1 DF EVERY SIX HOURS)
     Route: 048
     Dates: start: 20150408, end: 20150420
  2. CLINDAMYCIN [Suspect]
     Active Substance: CLINDAMYCIN\CLINDAMYCIN PHOSPHATE
     Indication: THROAT TIGHTNESS
     Dosage: 1 DF, QID
     Route: 048

REACTIONS (12)
  - Onychomadesis [Recovering/Resolving]
  - Psoriasis [Unknown]
  - Toxic epidermal necrolysis [Unknown]
  - Alopecia [Recovering/Resolving]
  - Erythema multiforme [Unknown]
  - Hand deformity [Recovering/Resolving]
  - Job dissatisfaction [Recovering/Resolving]
  - Gait disturbance [Recovering/Resolving]
  - Dermatitis [Unknown]
  - Stevens-Johnson syndrome [Recovering/Resolving]
  - Skin exfoliation [Recovering/Resolving]
  - Rash [Unknown]

NARRATIVE: CASE EVENT DATE: 20150420
